FAERS Safety Report 7760381-8 (Version None)
Quarter: 2011Q3

REPORT INFORMATION
  Report Type: 
  Country: None (occurrence: None)
  Receive Date: 20110919
  Receipt Date: 20110908
  Transmission Date: 20111222
  Serious: Yes (Death, Other)
  Sender: FDA-Public Use
  Company Number: PHHY2011JP60686

PATIENT
  Age: 51 Year
  Sex: Female
  Weight: 60 kg

DRUGS (14)
  1. CYCLOSPORINE [Interacting]
     Dosage: 100 MG,DAILY
  2. CYCLOSPORINE [Interacting]
     Dosage: 50 MG, DAILY
     Route: 041
  3. AMINO ACID INJ [Concomitant]
     Dosage: 300 ML, UNK
  4. MULTIVITAMIN ADDITIVE [Concomitant]
  5. CYCLOSPORINE [Interacting]
     Dosage: 25 MG/DOSE
  6. SOYA OIL [Interacting]
  7. MINERALIN [Concomitant]
  8. OXYCODONE HCL [Concomitant]
     Indication: PAIN
     Route: 048
  9. FRAGMIN [Concomitant]
  10. CYCLOSPORINE [Suspect]
     Indication: STEM CELL TRANSPLANT
     Dosage: 100 MG,DAILY
  11. PREDNISOLONE [Concomitant]
  12. SULFAMETHOXAZOLE [Concomitant]
     Indication: INFECTION PROPHYLAXIS
     Dosage: 0.5 MG, UNK
     Route: 048
  13. LEVOFLOXACIN [Concomitant]
     Indication: INFECTION
     Route: 048
  14. HICALIQ [Concomitant]
     Dosage: 500 ML, UNK

REACTIONS (14)
  - IMMUNOSUPPRESSANT DRUG LEVEL INCREASED [None]
  - ACUTE GRAFT VERSUS HOST DISEASE IN SKIN [None]
  - DIARRHOEA [None]
  - PYREXIA [None]
  - RASH [None]
  - DECREASED APPETITE [None]
  - DEATH [None]
  - ERYTHEMA [None]
  - BLOOD TRIGLYCERIDES INCREASED [None]
  - DRUG INTERACTION [None]
  - BLOOD CREATININE INCREASED [None]
  - HAEMATOCHEZIA [None]
  - NAUSEA [None]
  - GENERALISED OEDEMA [None]
